FAERS Safety Report 6341506-8 (Version None)
Quarter: 2009Q3

REPORT INFORMATION
  Report Type: 
  Country: None (occurrence: None)
  Receive Date: 20090904
  Receipt Date: 20090831
  Transmission Date: 20100115
  Serious: Yes (Hospitalization, Other)
  Sender: FDA-Public Use
  Company Number: US-JNJFOC-20090804263

PATIENT
  Sex: Female
  Weight: 57.61 kg

DRUGS (5)
  1. TOPAMAX [Suspect]
     Route: 048
  2. TOPAMAX [Suspect]
     Indication: CONVULSION
     Route: 048
  3. VIMPAT [Suspect]
     Indication: CONVULSION
     Route: 065
  4. TEGRETOL [Suspect]
     Indication: CONVULSION
     Route: 065
  5. LEVOTHYROXINE [Concomitant]
     Route: 065

REACTIONS (6)
  - ASTHENIA [None]
  - DECREASED APPETITE [None]
  - HOSPITALISATION [None]
  - HYPOKALAEMIA [None]
  - THIRST [None]
  - VOMITING [None]
